FAERS Safety Report 8803913 (Version 1)
Quarter: 2012Q4

REPORT INFORMATION
  Report Type: 
  Country: US (occurrence: US)
  Receive Date: 20120924
  Receipt Date: 20120924
  Transmission Date: 20130627
  Serious: No
  Sender: FDA-Public Use
  Company Number: US-PFIZER INC-2012231444

PATIENT
  Age: 80 Year
  Sex: Male
  Weight: 103 kg

DRUGS (12)
  1. LYRICA [Suspect]
     Indication: DIABETIC NEUROPATHY
     Dosage: 75 mg, (one in the morning and two at night)
  2. LYRICA [Suspect]
     Dosage: 225 mg, UNK
  3. LYRICA [Suspect]
     Dosage: 150 mg, 2x/day
  4. LYRICA [Suspect]
     Dosage: 450 mg, daily
  5. LYRICA [Suspect]
     Dosage: 150 mg, (two every am and two every pm)
     Route: 048
  6. PROZAC [Concomitant]
     Dosage: UNK
  7. AVALIDE [Concomitant]
     Dosage: UNK
  8. PROTONIX [Concomitant]
     Dosage: UNK
  9. VOLTAREN [Concomitant]
     Dosage: UNK
  10. FLEXERIL [Concomitant]
     Dosage: UNK
  11. ASPIRIN [Concomitant]
     Dosage: UNK
  12. LIPITOR [Concomitant]
     Dosage: UNK

REACTIONS (10)
  - Breakthrough pain [Unknown]
  - Chills [Unknown]
  - Night sweats [Unknown]
  - Headache [Unknown]
  - Dyspnoea [Unknown]
  - Gastrointestinal disorder [Unknown]
  - Musculoskeletal disorder [Unknown]
  - Arthropathy [Unknown]
  - Anxiety [Unknown]
  - Depression [Unknown]
